FAERS Safety Report 23365491 (Version 1)
Quarter: 2024Q1

REPORT INFORMATION
  Report Type: Report from Study
  Country: US (occurrence: US)
  Receive Date: 20240104
  Receipt Date: 20240104
  Transmission Date: 20240409
  Serious: No
  Sender: FDA-Public Use
  Company Number: US-ALXN-A202308650

PATIENT
  Age: 50 Year
  Sex: Female

DRUGS (2)
  1. STRENSIQ [Suspect]
     Active Substance: ASFOTASE ALFA
     Indication: Hypophosphatasia
     Dosage: UNK, TIW
     Route: 065
     Dates: start: 20230612
  2. STRENSIQ [Suspect]
     Active Substance: ASFOTASE ALFA
     Dosage: 162 MG/ML, TIW
     Route: 058
     Dates: start: 20230619

REACTIONS (6)
  - Limb mass [Unknown]
  - Injection site irritation [Recovered/Resolved]
  - Injection site reaction [Recovered/Resolved]
  - Injection site erythema [Unknown]
  - Injection site bruising [Recovered/Resolved]
  - Injection site discolouration [Recovered/Resolved]

NARRATIVE: CASE EVENT DATE: 20230621
